FAERS Safety Report 13583036 (Version 5)
Quarter: 2017Q3

REPORT INFORMATION
  Report Type: Spontaneous
  Country: US (occurrence: US)
  Receive Date: 20170525
  Receipt Date: 20170801
  Transmission Date: 20171127
  Serious: Yes (Death, Hospitalization)
  Sender: FDA-Public Use
  Company Number: US-ACTELION-A-NJ2017-154380

PATIENT
  Age: 62 Year
  Sex: Female
  Weight: 64.4 kg

DRUGS (2)
  1. OPSUMIT [Suspect]
     Active Substance: MACITENTAN
     Indication: PULMONARY ARTERIAL HYPERTENSION
     Dosage: 10 MG, QD
     Route: 048
     Dates: start: 201705, end: 20170621
  2. REMODULIN [Concomitant]
     Active Substance: TREPROSTINIL
     Dosage: 40 NG/KG, PER MIN
     Route: 058

REACTIONS (6)
  - Right ventricular failure [Fatal]
  - Pulmonary hypertension [Fatal]
  - Dyspnoea [Unknown]
  - Disease progression [Fatal]
  - Loss of consciousness [Unknown]
  - Hypoxia [Fatal]
